FAERS Safety Report 13659510 (Version 1)
Quarter: 2017Q2

REPORT INFORMATION
  Report Type: Spontaneous
  Country: US (occurrence: US)
  Receive Date: 20170616
  Receipt Date: 20170616
  Transmission Date: 20170830
  Serious: Yes (Hospitalization)
  Sender: FDA-Public Use
  Company Number: None

PATIENT
  Age: 58 Year
  Sex: Male
  Weight: 79.9 kg

DRUGS (12)
  1. ALDACTONE [Suspect]
     Active Substance: SPIRONOLACTONE
     Indication: HYPERTENSION
     Route: 048
  2. AMLODIPINE [Concomitant]
     Active Substance: AMLODIPINE BESYLATE
  3. LEVEMIR [Concomitant]
     Active Substance: INSULIN DETEMIR
  4. COREG [Concomitant]
     Active Substance: CARVEDILOL
  5. NEURONTIN [Concomitant]
     Active Substance: GABAPENTIN
  6. LYRICA [Concomitant]
     Active Substance: PREGABALIN
  7. FLOMAX [Concomitant]
     Active Substance: TAMSULOSIN HYDROCHLORIDE
  8. LASIX [Suspect]
     Active Substance: FUROSEMIDE
  9. ULTRA [Concomitant]
     Active Substance: SULFACETAMIDE SODIUM
  10. ZESTRIL [Suspect]
     Active Substance: LISINOPRIL
     Indication: HYPERTENSION
     Route: 048
  11. DILACOR [Concomitant]
  12. HCTZ [Concomitant]
     Active Substance: HYDROCHLOROTHIAZIDE

REACTIONS (3)
  - Acute kidney injury [None]
  - Cardiac failure acute [None]
  - Hyperkalaemia [None]

NARRATIVE: CASE EVENT DATE: 20160712
